FAERS Safety Report 26058700 (Version 1)
Quarter: 2025Q4

REPORT INFORMATION
  Report Type: Spontaneous
  Country: US (occurrence: None)
  Receive Date: 20251117
  Receipt Date: 20251117
  Transmission Date: 20260118
  Serious: No
  Sender: FDA-CTU
  Company Number: None

PATIENT
  Age: 74 Year
  Sex: Female

DRUGS (1)
  1. ATTRUBY [Suspect]
     Active Substance: ACORAMIDIS HYDROCHLORIDE
     Indication: Cardiac amyloidosis
     Dosage: 712 MG TWICE A DAY ORAL ?
     Route: 048
     Dates: start: 20251104, end: 20251112

REACTIONS (2)
  - Swelling face [None]
  - Dry mouth [None]

NARRATIVE: CASE EVENT DATE: 20251111
